FAERS Safety Report 14394646 (Version 1)
Quarter: 2018Q1

REPORT INFORMATION
  Report Type: Spontaneous
  Country: FR (occurrence: FR)
  Receive Date: 20180116
  Receipt Date: 20180116
  Transmission Date: 20180509
  Serious: Yes (Hospitalization, Other)
  Sender: FDA-Public Use
  Company Number: FR-PFIZER INC-2018013018

PATIENT
  Age: 69 Year
  Sex: Female
  Weight: 60 kg

DRUGS (14)
  1. CYTARABINE. [Suspect]
     Active Substance: CYTARABINE
     Dosage: 200 MG/M2, 1X/DAY
     Route: 042
     Dates: start: 20171222, end: 20171222
  2. HYDREA [Concomitant]
     Active Substance: HYDROXYUREA
     Indication: TUMOUR LYSIS SYNDROME
     Dosage: 1500 MG, 1X/DAY
     Route: 048
     Dates: start: 20171220, end: 20171222
  3. LOXEN /00639802/ [Concomitant]
     Active Substance: NICARDIPINE HYDROCHLORIDE
     Indication: HYPERTENSION
     Dosage: 100 MG, 1X/DAY
     Route: 048
     Dates: start: 20171205
  4. INEXIUM /01479303/ [Concomitant]
     Active Substance: ESOMEPRAZOLE
     Dosage: 20 MG, 1X/DAY
     Route: 048
     Dates: start: 20171205
  5. IDARUBICIN HCL [Suspect]
     Active Substance: IDARUBICIN HYDROCHLORIDE
     Indication: ACUTE MYELOID LEUKAEMIA
     Dosage: 12 MG/M2, 1X/DAY
     Route: 041
     Dates: start: 20171222, end: 20171222
  6. ZYVOXID [Concomitant]
     Active Substance: LINEZOLID
     Indication: FEBRILE BONE MARROW APLASIA
     Dosage: 1200 MG, 1X/DAY
     Route: 048
     Dates: start: 20171221, end: 20171226
  7. VANCOMYCINE [Concomitant]
     Active Substance: VANCOMYCIN
     Indication: FEBRILE BONE MARROW APLASIA
     Dosage: 750 MG, 1X/DAY
     Route: 042
     Dates: start: 20171219, end: 20171222
  8. ZYLORIC [Concomitant]
     Active Substance: ALLOPURINOL
     Indication: BLOOD URIC ACID INCREASED
     Dosage: 300 MG, ONCE IN AN HOUR
     Route: 048
     Dates: start: 20171206
  9. ONDANSETRON [Concomitant]
     Active Substance: ONDANSETRON
     Indication: NAUSEA
     Dosage: 8 MG, 1X/DAY
     Route: 042
     Dates: start: 20171222, end: 20171222
  10. PIPERACILLIN AND TAZOBACTAM [Concomitant]
     Active Substance: PIPERACILLIN SODIUM\TAZOBACTAM SODIUM
     Indication: FEBRILE BONE MARROW APLASIA
     Dosage: 12 G, 1X/DAY
     Route: 042
     Dates: start: 20171205, end: 20171223
  11. KARDEGIC [Concomitant]
     Active Substance: ASPIRIN DL-LYSINE
     Indication: PLATELET COUNT DECREASED
     Dosage: 75 MG, 1X/DAY
     Route: 048
     Dates: start: 20171211
  12. NOXAFIL [Concomitant]
     Active Substance: POSACONAZOLE
     Indication: ANTIFUNGAL PROPHYLAXIS
     Dosage: 300 MG, 1X/DAY
     Route: 048
     Dates: start: 20171220
  13. AMLOR [Concomitant]
     Active Substance: AMLODIPINE BESYLATE
     Indication: HYPERTENSION
     Dosage: 5 MG, 1X/DAY
     Route: 048
     Dates: start: 20171207
  14. EMEND [Concomitant]
     Active Substance: APREPITANT
     Indication: NAUSEA
     Dosage: 125 MG, 1X/DAY
     Route: 048
     Dates: start: 20171222, end: 20171222

REACTIONS (2)
  - N-terminal prohormone brain natriuretic peptide increased [Unknown]
  - Respiratory distress [Recovering/Resolving]

NARRATIVE: CASE EVENT DATE: 20171222
